FAERS Safety Report 22594083 (Version 1)
Quarter: 2023Q2

REPORT INFORMATION
  Report Type: Report from Study
  Country: EG (occurrence: EG)
  Receive Date: 20230613
  Receipt Date: 20230613
  Transmission Date: 20230722
  Serious: Yes (Hospitalization, Other)
  Sender: FDA-Public Use
  Company Number: EG-002147023-NVSC2023EG106898

PATIENT
  Sex: Male

DRUGS (4)
  1. AFINITOR [Suspect]
     Active Substance: EVEROLIMUS
     Indication: Metastatic renal cell carcinoma
     Dosage: 10 MG, QD (SERIAL/ LOT NUMBER OF THE MEDICAL DEVICE:  91245463190840)
     Route: 048
     Dates: start: 20230420
  2. AFINITOR [Suspect]
     Active Substance: EVEROLIMUS
     Dosage: UNK
     Route: 048
  3. SOLPADEINE [Concomitant]
     Indication: Analgesic therapy
     Dosage: 1 DOSAGE FORM, QID
     Route: 048
     Dates: start: 202302
  4. TRAMADOL [Concomitant]
     Active Substance: TRAMADOL
     Indication: Analgesic therapy
     Dosage: 1 DOSAGE FORM, BID
     Route: 048
     Dates: start: 202302

REACTIONS (4)
  - Hypotension [Unknown]
  - Anaemia [Recovering/Resolving]
  - Pneumonia [Unknown]
  - Chest pain [Unknown]
